FAERS Safety Report 5192419-9 (Version None)
Quarter: 2006Q4

REPORT INFORMATION
  Report Type: 
  Country: None (occurrence: None)
  Receive Date: 20061220
  Receipt Date: 20061212
  Transmission Date: 20070319
  Serious: Yes (Disabling)
  Sender: FDA-Public Use
  Company Number: HQWYE956113DEC06

PATIENT
  Sex: Female

DRUGS (4)
  1. EFFEXOR XR [Suspect]
     Indication: DEPRESSION
     Dosage: 37.5 + 75 + 150 MG (FREQUENCY UNSPECIFIED) - SEE IMAGE
     Dates: end: 20061121
  2. EFFEXOR XR [Suspect]
     Indication: DEPRESSION
     Dosage: 37.5 + 75 + 150 MG (FREQUENCY UNSPECIFIED) - SEE IMAGE
     Dates: start: 20061122, end: 20061125
  3. EFFEXOR XR [Suspect]
     Indication: DEPRESSION
     Dosage: 37.5 + 75 + 150 MG (FREQUENCY UNSPECIFIED) - SEE IMAGE
     Dates: start: 20061126, end: 20061129
  4. EFFEXOR XR [Suspect]
     Indication: DEPRESSION
     Dosage: 37.5 + 75 + 150 MG (FREQUENCY UNSPECIFIED) - SEE IMAGE

REACTIONS (11)
  - AFFECT LABILITY [None]
  - CHILLS [None]
  - COMMUNICATION DISORDER [None]
  - CONDITION AGGRAVATED [None]
  - DEPRESSION [None]
  - DRUG WITHDRAWAL SYNDROME [None]
  - EYE MOVEMENT DISORDER [None]
  - HYPERHIDROSIS [None]
  - NAUSEA [None]
  - PARAESTHESIA [None]
  - VISUAL DISTURBANCE [None]
